FAERS Safety Report 7735143-8 (Version None)
Quarter: 2011Q3

REPORT INFORMATION
  Report Type: 
  Country: None (occurrence: None)
  Receive Date: 20110907
  Receipt Date: 20110830
  Transmission Date: 20111222
  Serious: Yes (Death, Hospitalization, Disabling)
  Sender: FDA-Public Use
  Company Number: GB-ROCHE-797273

PATIENT
  Sex: Female
  Weight: 93 kg

DRUGS (7)
  1. PACLITAXEL [Suspect]
     Indication: BREAST CANCER
     Route: 042
     Dates: start: 20110617, end: 20110817
  2. LANSOPRAZOLE [Concomitant]
     Dates: start: 20110721, end: 20110829
  3. OXYCONTIN [Concomitant]
     Dates: start: 20110721, end: 20110829
  4. OXYCODONE HCL [Concomitant]
     Dates: start: 20110721, end: 20110829
  5. CITALOPRAM [Concomitant]
     Dates: start: 20110806, end: 20110829
  6. BEVACIZUMAB [Suspect]
     Indication: BREAST CANCER
     Route: 042
     Dates: start: 20110617, end: 20110817
  7. DIFFLAM [Concomitant]
     Dates: start: 20110807, end: 20110829

REACTIONS (3)
  - PARANEOPLASTIC SYNDROME [None]
  - METASTASES TO CENTRAL NERVOUS SYSTEM [None]
  - ATAXIA [None]
